FAERS Safety Report 5080848-3 (Version None)
Quarter: 2006Q3

REPORT INFORMATION
  Report Type: 
  Country: None (occurrence: None)
  Receive Date: 20060811
  Receipt Date: 20060801
  Transmission Date: 20061208
  Serious: Yes (Hospitalization, Other)
  Sender: FDA-Public Use
  Company Number: 2006082894

PATIENT
  Age: 74 Year
  Sex: Male
  Weight: 89.3586 kg

DRUGS (8)
  1. LYRICA [Suspect]
     Indication: NEUROPATHY PERIPHERAL
     Dosage: 150 MG (75 MG, 2 IN 1 D), ORAL
     Route: 048
     Dates: start: 20060626
  2. ARAVA [Concomitant]
  3. PREDNISONE TAB [Concomitant]
  4. CELEBREX [Concomitant]
  5. FOLIC ACID [Concomitant]
  6. NEXIUM [Concomitant]
  7. STOOL SOFTENER (DOCUSATE SODIUM) [Concomitant]
  8. ARANESP [Concomitant]

REACTIONS (4)
  - DIZZINESS [None]
  - HAEMOGLOBIN DECREASED [None]
  - HALLUCINATION [None]
  - SOMNOLENCE [None]
